FAERS Safety Report 24110235 (Version 1)
Quarter: 2024Q3

REPORT INFORMATION
  Report Type: Spontaneous
  Country: US (occurrence: None)
  Receive Date: 20240717
  Receipt Date: 20240717
  Transmission Date: 20241016
  Serious: Yes (Other)
  Sender: Public
  Company Number: None

PATIENT
  Age: 16 Year
  Sex: Male
  Weight: 63 kg

DRUGS (10)
  1. LEVOFLOXACIN [Suspect]
     Active Substance: LEVOFLOXACIN
     Indication: Sinusitis
     Dosage: OTHER QUANTITY : 7 TABLET(S);?FREQUENCY : DAILY;?
     Route: 048
     Dates: start: 20221205, end: 20221208
  2. HYDROXYZINE [Concomitant]
     Active Substance: HYDROXYZINE HYDROCHLORIDE
  3. ONDANSETRON [Concomitant]
     Active Substance: ONDANSETRON
  4. NALTREXONE [Concomitant]
     Active Substance: NALTREXONE
  5. ZYRTEC [Concomitant]
     Active Substance: CETIRIZINE HYDROCHLORIDE
  6. VITAMINS [Concomitant]
     Active Substance: VITAMINS
  7. COPPER [Concomitant]
     Active Substance: COPPER
  8. VITAMIN D3 [Concomitant]
     Active Substance: CHOLECALCIFEROL
  9. C [Concomitant]
  10. MAGNESIUM MALATE [Concomitant]
     Active Substance: MAGNESIUM MALATE

REACTIONS (3)
  - Colitis [None]
  - Anxiety [None]
  - Drug intolerance [None]

NARRATIVE: CASE EVENT DATE: 20221205
